FAERS Safety Report 5669957-5 (Version None)
Quarter: 2008Q1

REPORT INFORMATION
  Report Type: 
  Country: None (occurrence: None)
  Receive Date: 20080312
  Receipt Date: 20080213
  Transmission Date: 20080703
  Serious: No
  Sender: FDA-Public Use
  Company Number: 2000003753-FJ

PATIENT
  Age: 57 Year
  Sex: Female

DRUGS (5)
  1. PROGRAF [Suspect]
     Indication: RENAL TRANSPLANT
     Dosage: 22 MG, /D, ORAL; D/ ORAL
     Route: 048
     Dates: start: 20000301
  2. PROGRAF [Suspect]
     Indication: RENAL TRANSPLANT
     Dosage: IV NOS
     Route: 042
     Dates: start: 20000301
  3. LANSPRAZOLE (LANSPRAZOLE) PER ORAL NOS [Suspect]
     Indication: PEPTIC ULCER
     Dosage: 30 MG, /D, ORAL
     Route: 048
     Dates: start: 20000417, end: 20000630
  4. PREDNISOLONE [Concomitant]
  5. MYCOPHENOLC ACID (MYCOPHENOLIC ACID) FORMULATION UNKNOWN [Concomitant]

REACTIONS (3)
  - DRUG INTERACTION [None]
  - DRUG LEVEL INCREASED [None]
  - PEPTIC ULCER [None]
